FAERS Safety Report 5089840-6 (Version None)
Quarter: 2006Q3

REPORT INFORMATION
  Report Type: 
  Country: None (occurrence: None)
  Receive Date: 20060823
  Receipt Date: 20060809
  Transmission Date: 20061208
  Serious: Yes (Death, Hospitalization, Other)
  Sender: FDA-Public Use
  Company Number: 2006-DE-04196GD

PATIENT
  Age: 76 Year
  Sex: Female

DRUGS (8)
  1. PREDNISONE TAB [Suspect]
     Indication: RHEUMATOID ARTHRITIS
     Dosage: SEE IMAGE
  2. METHOTREXATE [Suspect]
     Indication: RHEUMATOID ARTHRITIS
  3. INFLIXIMAB (INFLIXIMAB) [Suspect]
     Indication: RHEUMATOID ARTHRITIS
  4. HYDROXYCHLOROQUINE SULFATE [Suspect]
     Indication: RHEUMATOID ARTHRITIS
  5. LEFLUNOMIDE [Suspect]
     Indication: RHEUMATOID ARTHRITIS
  6. DAPSONE [Concomitant]
  7. CLOFAZIMINE (CLOFAZIMINE) [Concomitant]
  8. RIFAMPICIN [Concomitant]

REACTIONS (4)
  - HAEMOGLOBIN DECREASED [None]
  - IMMUNE RECONSTITUTION SYNDROME [None]
  - LEPROSY [None]
  - NEUROPATHY PERIPHERAL [None]
